FAERS Safety Report 8345176-9 (Version None)
Quarter: 2012Q2

REPORT INFORMATION
  Report Type: 
  Country: None (occurrence: None)
  Receive Date: 20120508
  Receipt Date: 20120502
  Transmission Date: 20120825
  Serious: Yes (Life-Threatening, Hospitalization)
  Sender: FDA-Public Use
  Company Number: PHHY2012CH037420

PATIENT
  Age: 83 Year
  Sex: Female

DRUGS (12)
  1. FLOXAPEN [Concomitant]
     Indication: SPONDYLOARTHROPATHY
     Dosage: 2 G, PER 4 HOURS
     Route: 042
     Dates: start: 20120125
  2. ZOFRAN [Suspect]
     Indication: VOMITING
  3. DIGOXIN [Concomitant]
     Indication: ATRIAL FLUTTER
  4. CALCIMAGON-D3 [Concomitant]
     Indication: OSTEOPOROSIS
     Dosage: 500 MG, PER 12 HOURS, LONG TERM
     Route: 048
  5. CITALOPRAM HYDROBROMIDE [Suspect]
     Dosage: 10 MG, DAILY DOSE, LONG TERM
     Route: 048
  6. MORPHIN HCL [Concomitant]
     Indication: SPONDYLOARTHROPATHY
     Dosage: 2.5 MG, ONE EVERY FOUR HOURS
     Route: 048
     Dates: start: 20120125
  7. ZOFRAN [Suspect]
     Indication: NAUSEA
     Dosage: 4 MG, PER 8 HOURS
     Route: 042
     Dates: start: 20120215, end: 20120304
  8. ZOLPIDEM [Concomitant]
     Indication: SLEEP DISORDER
     Dosage: 5 MG, DAILY DOSE, IN RESERVE
     Route: 048
  9. LAXOBERON [Concomitant]
     Indication: CONSTIPATION
     Dosage: 20 DRP, PER 12 HOURS
     Dates: start: 20120125
  10. TORSEMIDE [Suspect]
     Dosage: 10 MG, DAILY DOSE, LONG TERM
     Route: 048
  11. SINTROM [Suspect]
     Indication: ATRIAL FIBRILLATION
     Dosage: 3 MG, DAILY
     Route: 048
     Dates: end: 20120220
  12. DIGOXIN [Concomitant]
     Indication: ATRIAL FIBRILLATION
     Dosage: 0.25 MG, DAILY DOSE, FIVE TIMES PER WEEK, LONG TERM
     Route: 048

REACTIONS (7)
  - VOMITING [None]
  - BACTERAEMIA [None]
  - INTERNATIONAL NORMALISED RATIO INCREASED [None]
  - STAPHYLOCOCCAL INFECTION [None]
  - GASTROENTERITIS VIRAL [None]
  - SPONDYLITIS [None]
  - NAUSEA [None]
